FAERS Safety Report 10844586 (Version 1)
Quarter: 2015Q1

REPORT INFORMATION
  Report Type: Report from Study
  Country: US (occurrence: US)
  Receive Date: 20150220
  Receipt Date: 20150220
  Transmission Date: 20150721
  Serious: No
  Sender: FDA-Public Use
  Company Number: US-ABBVIE-14P-163-1293509-00

PATIENT
  Sex: Female

DRUGS (1)
  1. HUMIRA [Suspect]
     Active Substance: ADALIMUMAB
     Indication: CROHN^S DISEASE
     Route: 065
     Dates: start: 20140627

REACTIONS (6)
  - Product quality issue [Unknown]
  - Crohn^s disease [Unknown]
  - Fungal infection [Unknown]
  - Drug dose omission [Not Recovered/Not Resolved]
  - Secretion discharge [Unknown]
  - Fatigue [Unknown]

NARRATIVE: CASE EVENT DATE: 2014
